FAERS Safety Report 14057814 (Version 3)
Quarter: 2018Q2

REPORT INFORMATION
  Report Type: Report from Study
  Country: None (occurrence: US)
  Receive Date: 20171006
  Receipt Date: 20180509
  Transmission Date: 20180711
  Serious: Yes (Hospitalization, Other)
  Sender: FDA-Public Use
  Company Number: US-BAUSCH-BL-2017-028499

PATIENT
  Age: 25 Year
  Sex: Male
  Weight: 63.5 kg

DRUGS (2)
  1. DEMSER [Suspect]
     Active Substance: METYROSINE
     Indication: PSYCHOTIC DISORDER
     Route: 048
     Dates: start: 2008, end: 201709
  2. DEMSER [Suspect]
     Active Substance: METYROSINE
     Route: 048
     Dates: start: 20170929

REACTIONS (5)
  - Psychotic disorder [Unknown]
  - Off label use [Unknown]
  - Treatment noncompliance [Unknown]
  - Schizophrenia [Unknown]
  - Inappropriate schedule of drug administration [Unknown]

NARRATIVE: CASE EVENT DATE: 20170929
